FAERS Safety Report 5370140-1 (Version None)
Quarter: 2007Q2

REPORT INFORMATION
  Report Type: 
  Country: None (occurrence: None)
  Receive Date: 20070626
  Receipt Date: 20070613
  Transmission Date: 20071010
  Serious: Yes (Death, Hospitalization)
  Sender: FDA-Public Use
  Company Number: US-SANOFI-SYNTHELABO-A03200700226

PATIENT
  Sex: Male
  Weight: 74.83 kg

DRUGS (5)
  1. PLAVIX [Suspect]
     Indication: CEREBROVASCULAR ACCIDENT
     Dosage: UNK
     Route: 048
     Dates: start: 20050401
  2. ISOSORBIDE MONONITRATE [Concomitant]
     Dosage: UNK
     Route: 048
     Dates: start: 20060307
  3. LEVAQUIN [Concomitant]
     Route: 048
     Dates: start: 20051220, end: 20051224
  4. LISINOPRIL [Concomitant]
     Route: 048
     Dates: start: 20050622
  5. CEPHALEXIN [Concomitant]
     Route: 048
     Dates: start: 20051222

REACTIONS (3)
  - DYSPNOEA [None]
  - MYOCARDIAL ISCHAEMIA [None]
  - PERICARDIAL EFFUSION [None]
